FAERS Safety Report 10142514 (Version 2)
Quarter: 2014Q3

REPORT INFORMATION
  Report Type: Spontaneous
  Country: US (occurrence: US)
  Receive Date: 20140430
  Receipt Date: 20140714
  Transmission Date: 20150326
  Serious: Yes (Hospitalization, Other)
  Sender: FDA-Public Use
  Company Number: US-UCBSA-119165

PATIENT
  Age: 29 Year
  Sex: Female
  Weight: 54.43 kg

DRUGS (3)
  1. KEPPRA [Suspect]
     Active Substance: LEVETIRACETAM
     Indication: CONVULSION
     Dosage: 500 MG 6 TABS, DAILY DOSE: 3000 MG
     Dates: start: 201310
  2. KEPPRA [Suspect]
     Active Substance: LEVETIRACETAM
     Dosage: 2000 MG, 2X/DAY (BID)
  3. VIMPAT [Suspect]
     Active Substance: LACOSAMIDE
     Indication: CONVULSION
     Dosage: 200 MG, 2X/DAY (BID)
     Dates: start: 201310

REACTIONS (3)
  - Convulsion [Not Recovered/Not Resolved]
  - Overdose [Not Recovered/Not Resolved]
  - Astrocytoma [Not Recovered/Not Resolved]

NARRATIVE: CASE EVENT DATE: 201310
